FAERS Safety Report 4758284-6 (Version None)
Quarter: 2005Q3

REPORT INFORMATION
  Report Type: 
  Country: None (occurrence: None)
  Receive Date: 20050826
  Receipt Date: 20050610
  Transmission Date: 20060218
  Serious: No
  Sender: FDA-Public Use
  Company Number: WAES 0506USA01999

PATIENT
  Age: 61 Year
  Sex: Female

DRUGS (1)
  1. ZETIA [Suspect]
     Indication: BLOOD CHOLESTEROL INCREASED
     Dosage: 10 MG/DAILY/PO
     Route: 048
     Dates: start: 20040601, end: 20040701

REACTIONS (13)
  - ASTHENIA [None]
  - BALANCE DISORDER [None]
  - CARPAL TUNNEL SYNDROME [None]
  - CUBITAL TUNNEL SYNDROME [None]
  - DIFFICULTY IN WALKING [None]
  - EATING DISORDER [None]
  - FALL [None]
  - FEAR OF FALLING [None]
  - HAND FRACTURE [None]
  - INSOMNIA [None]
  - MUSCLE SPASMS [None]
  - NEUROPATHY [None]
  - WEIGHT DECREASED [None]
